FAERS Safety Report 13854252 (Version 3)
Quarter: 2017Q4

REPORT INFORMATION
  Report Type: Spontaneous
  Country: JP (occurrence: JP)
  Receive Date: 20170810
  Receipt Date: 20171006
  Transmission Date: 20180320
  Serious: Yes (Other)
  Sender: FDA-Public Use
  Company Number: JP-GLAXOSMITHKLINE-JP2017JPN120983

PATIENT
  Age: 59 Year
  Sex: Female

DRUGS (1)
  1. FLUTIDE [Suspect]
     Active Substance: FLUTICASONE PROPIONATE
     Indication: ASTHMA
     Dosage: 200 ?G, UNK
     Route: 055
     Dates: start: 2004

REACTIONS (5)
  - Product quality issue [Unknown]
  - Oral candidiasis [Recovered/Resolved]
  - Leukoplakia oral [Recovered/Resolved]
  - Paraesthesia oral [Recovered/Resolved]
  - Wrong technique in product usage process [Unknown]

NARRATIVE: CASE EVENT DATE: 20170803
